FAERS Safety Report 8134042-X (Version None)
Quarter: 2012Q1

REPORT INFORMATION
  Report Type: 
  Country: None (occurrence: None)
  Receive Date: 20120214
  Receipt Date: 20120203
  Transmission Date: 20120608
  Serious: Yes (Hospitalization)
  Sender: FDA-Public Use
  Company Number: US-BIOGENIDEC-2012BI002442

PATIENT
  Age: 56 Year
  Sex: Female

DRUGS (1)
  1. TYSABRI [Suspect]
     Indication: MULTIPLE SCLEROSIS
     Route: 042
     Dates: start: 20110208

REACTIONS (5)
  - LOCALISED INFECTION [None]
  - GAIT DISTURBANCE [None]
  - CELLULITIS [None]
  - DECREASED IMMUNE RESPONSIVENESS [None]
  - MUSCULAR WEAKNESS [None]
